FAERS Safety Report 11856106 (Version 2)
Quarter: 2015Q4

REPORT INFORMATION
  Report Type: Report from Study
  Country: AR (occurrence: AR)
  Receive Date: 20151221
  Receipt Date: 20151229
  Transmission Date: 20160305
  Serious: Yes (Other)
  Sender: FDA-Public Use
  Company Number: PHHY2015AR165890

PATIENT
  Age: 65 Year
  Sex: Male

DRUGS (2)
  1. ESTAPROL [Concomitant]
     Indication: BLOOD CHOLESTEROL
     Dosage: 100 MG, QD
     Route: 065
  2. DIOVAN D [Suspect]
     Active Substance: HYDROCHLOROTHIAZIDE\VALSARTAN
     Indication: HYPERTENSION
     Dosage: 160 MG, QD (STARTED 4 TO 5 YEARS AGO)
     Route: 065

REACTIONS (2)
  - Blood glucose increased [Recovering/Resolving]
  - Diabetes mellitus [Recovering/Resolving]

NARRATIVE: CASE EVENT DATE: 201507
